FAERS Safety Report 14344211 (Version 1)
Quarter: 2018Q1

REPORT INFORMATION
  Report Type: Spontaneous
  Country: US (occurrence: US)
  Receive Date: 20180102
  Receipt Date: 20180102
  Transmission Date: 20180509
  Serious: Yes (Death, Other)
  Sender: FDA-Public Use
  Company Number: US-009507513-1712USA014656

PATIENT
  Age: 74 Year
  Sex: Female

DRUGS (7)
  1. COZAAR [Suspect]
     Active Substance: LOSARTAN POTASSIUM
     Dosage: UNK
     Route: 048
  2. AMLODIPINE [Suspect]
     Active Substance: AMLODIPINE BESYLATE
  3. HYDRALAZINE [Suspect]
     Active Substance: HYDRALAZINE HYDROCHLORIDE
  4. RIVAROXABAN [Suspect]
     Active Substance: RIVAROXABAN
  5. AMIODARONE [Suspect]
     Active Substance: AMIODARONE
  6. POTASSIUM (UNSPECIFIED) [Suspect]
     Active Substance: POTASSIUM
  7. METHYL SALICYLATE [Suspect]
     Active Substance: METHYL SALICYLATE

REACTIONS (1)
  - Death [Fatal]
